FAERS Safety Report 7328278-5 (Version None)
Quarter: 2011Q1

REPORT INFORMATION
  Report Type: 
  Country: None (occurrence: None)
  Receive Date: 20110223
  Receipt Date: 20110217
  Transmission Date: 20110831
  Serious: Yes (Death)
  Sender: FDA-Public Use
  Company Number: 2011S1000214

PATIENT
  Age: 67 Year
  Sex: Female

DRUGS (5)
  1. LIVALO [Suspect]
     Indication: DYSLIPIDAEMIA
     Dosage: 2 MG;1X;PO
     Route: 048
     Dates: start: 20101112, end: 20101128
  2. COAPROVEL [Concomitant]
  3. PLAVIX [Concomitant]
  4. JANUVIA [Concomitant]
  5. METFORMIN HCL [Concomitant]

REACTIONS (1)
  - DEATH [None]
